FAERS Safety Report 5649214-3 (Version None)
Quarter: 2008Q1

REPORT INFORMATION
  Report Type: 
  Country: None (occurrence: None)
  Receive Date: 20080304
  Receipt Date: 20080228
  Transmission Date: 20080703
  Serious: No
  Sender: FDA-Public Use
  Company Number: US-JNJFOC-20080300365

PATIENT
  Age: 26 Year
  Sex: Female
  Weight: 49.9 kg

DRUGS (2)
  1. INVEGA [Suspect]
     Route: 048
  2. INVEGA [Suspect]
     Indication: HALLUCINATION
     Route: 048

REACTIONS (1)
  - BLOOD URINE PRESENT [None]
